FAERS Safety Report 5005738-3 (Version None)
Quarter: 2006Q2

REPORT INFORMATION
  Report Type: 
  Country: None (occurrence: None)
  Receive Date: 20060516
  Receipt Date: 20060502
  Transmission Date: 20061013
  Serious: Yes (Other)
  Sender: FDA-Public Use
  Company Number: TRP_0734_2006

PATIENT
  Age: 56 Year
  Sex: Male

DRUGS (4)
  1. RIBASPHERE [Suspect]
     Indication: HEPATITIS C
     Dosage: 600 MG QDAY PO
     Route: 048
     Dates: start: 20050225
  2. PEGASYS/PEGINTERFERON ALFA-2B/ROCHE [Suspect]
     Indication: HEPATITIS C
     Dosage: 180 MCG QWK SC
     Route: 058
     Dates: start: 20051125
  3. RIBASPHERE [Suspect]
     Indication: HEPATITIS C
     Dosage: 400 MG QDAY PO
     Route: 048
     Dates: start: 20060101
  4. CYMBALTA [Concomitant]

REACTIONS (3)
  - EYELID PTOSIS [None]
  - RETINAL EXUDATES [None]
  - WHITE BLOOD CELL COUNT DECREASED [None]
